FAERS Safety Report 24652148 (Version 2)
Quarter: 2025Q1

REPORT INFORMATION
  Report Type: Spontaneous
  Country: US (occurrence: US)
  Receive Date: 20241122
  Receipt Date: 20250205
  Transmission Date: 20250409
  Serious: Yes (Other)
  Sender: ROCHE
  Company Number: US-ROCHE-10000135730

PATIENT
  Sex: Female

DRUGS (4)
  1. XOLAIR PFS [Suspect]
     Active Substance: OMALIZUMAB
     Indication: Urticaria
     Dosage: ONGOING
     Route: 058
     Dates: start: 202311
  2. XOLAIR PFS [Suspect]
     Active Substance: OMALIZUMAB
  3. TYLENOL [Concomitant]
     Active Substance: ACETAMINOPHEN
  4. MOTRIN [Concomitant]
     Active Substance: IBUPROFEN

REACTIONS (15)
  - Joint injury [Unknown]
  - Pain [Unknown]
  - Synovial cyst [Unknown]
  - Osteoporosis [Unknown]
  - Hepatic enzyme increased [Unknown]
  - Palpitations [Unknown]
  - Abdominal pain upper [Unknown]
  - Cholelithiasis [Unknown]
  - Renal cyst [Unknown]
  - Fall [Unknown]
  - Meniscus injury [Unknown]
  - Liver function test increased [Unknown]
  - Rash [Unknown]
  - Hepatic cyst [Unknown]
  - Cyst [Unknown]
